FAERS Safety Report 7361812-8 (Version None)
Quarter: 2011Q1

REPORT INFORMATION
  Report Type: 
  Country: None (occurrence: None)
  Receive Date: 20110318
  Receipt Date: 20110310
  Transmission Date: 20110831
  Serious: Yes (Hospitalization, Other)
  Sender: FDA-Public Use
  Company Number: US-ELI_LILLY_AND_COMPANY-US201012004702

PATIENT
  Sex: Female

DRUGS (6)
  1. FEXOFENADINE [Concomitant]
  2. EVISTA [Suspect]
     Indication: OSTEOPENIA
     Dosage: 60 MG, UNK
     Route: 048
     Dates: end: 20090911
  3. TRAMADOL HCL [Concomitant]
     Dosage: 50 MG, AS NEEDED
     Route: 048
  4. LEXAPRO [Concomitant]
     Indication: DEPRESSION
     Dosage: 20 MG, DAILY (1/D)
     Route: 048
  5. CALCIUM [Concomitant]
     Dosage: 1 D/F, UNK
  6. VITAMIN D [Concomitant]
     Dosage: 1 D/F, UNK

REACTIONS (10)
  - PULMONARY EMBOLISM [None]
  - EPISTAXIS [None]
  - GAIT DISTURBANCE [None]
  - PAIN [None]
  - NASOPHARYNGITIS [None]
  - BLOOD CHOLESTEROL INCREASED [None]
  - CONTUSION [None]
  - ANXIETY [None]
  - STRESS [None]
  - SLEEP DISORDER [None]
